FAERS Safety Report 14023437 (Version 1)
Quarter: 2017Q3

REPORT INFORMATION
  Report Type: Spontaneous
  Country: BE (occurrence: BE)
  Receive Date: 20170929
  Receipt Date: 20170929
  Transmission Date: 20171128
  Serious: Yes (Other)
  Sender: FDA-Public Use
  Company Number: BE-APOTEX-2017AP019157

PATIENT
  Sex: Female

DRUGS (1)
  1. CELECOXIB CAPSULES, HARD [Suspect]
     Active Substance: CELECOXIB
     Indication: PRODUCT USED FOR UNKNOWN INDICATION
     Dosage: 200 MG, 10 CAPS
     Route: 048

REACTIONS (1)
  - Eyelid oedema [Unknown]
